FAERS Safety Report 6091705-8 (Version None)
Quarter: 2009Q1

REPORT INFORMATION
  Report Type: 
  Country: None (occurrence: None)
  Receive Date: 20090225
  Receipt Date: 20080421
  Transmission Date: 20090719
  Serious: No
  Sender: FDA-Public Use
  Company Number: A0723869A

PATIENT

DRUGS (1)
  1. VALTREX [Suspect]
     Dosage: 2G TWICE PER DAY
     Route: 048

REACTIONS (1)
  - DIARRHOEA [None]
